FAERS Safety Report 9970408 (Version 1)
Quarter: 2014Q1

REPORT INFORMATION
  Report Type: Spontaneous
  Country: US (occurrence: None)
  Receive Date: 20140127
  Receipt Date: 20140127
  Transmission Date: 20141002
  Serious: Yes (Other)
  Sender: FDA-Public Use
  Company Number: 1283349

PATIENT
  Age: 22 Year
  Sex: Female

DRUGS (2)
  1. RITUXAN [Suspect]
     Indication: GRANULOMA
     Dosage: ONE TIME DOSE (375 MG/M2), UNKNOWN
     Dates: start: 20130708
  2. RITUXAN [Suspect]
     Indication: VASCULITIS
     Dosage: ONE TIME DOSE (375 MG/M2), UNKNOWN
     Dates: start: 20130708

REACTIONS (4)
  - Throat irritation [None]
  - Urticaria [None]
  - Erythema [None]
  - Pharyngeal oedema [None]
